FAERS Safety Report 24551618 (Version 1)
Quarter: 2024Q4

REPORT INFORMATION
  Report Type: Spontaneous
  Country: CA (occurrence: CA)
  Receive Date: 20241026
  Receipt Date: 20241026
  Transmission Date: 20250115
  Serious: Yes (Other)
  Sender: AUROBINDO
  Company Number: CA-AUROBINDO-AUR-APL-2024-000781

PATIENT
  Age: 70 Year
  Sex: Female

DRUGS (3)
  1. GABAPENTIN [Suspect]
     Active Substance: GABAPENTIN
     Indication: Pain
     Dosage: UNK
     Route: 065
  2. LISINOPRIL [Suspect]
     Active Substance: LISINOPRIL
     Indication: Hypertension
     Dosage: UNK
     Route: 065
  3. PILOCARPINE [Suspect]
     Active Substance: PILOCARPINE
     Indication: Pain
     Dosage: UNK
     Route: 065

REACTIONS (3)
  - Burning mouth syndrome [Recovered/Resolved]
  - Adverse event [Unknown]
  - Drug ineffective [Unknown]
